FAERS Safety Report 16589649 (Version 2)
Quarter: 2021Q2

REPORT INFORMATION
  Report Type: Spontaneous
  Country: US (occurrence: US)
  Receive Date: 20190718
  Receipt Date: 20210409
  Transmission Date: 20210716
  Serious: Yes (Hospitalization, Disabling)
  Sender: FDA-Public Use
  Company Number: US-TEVA-2019-US-1079179

PATIENT
  Age: 52 Year
  Sex: Male

DRUGS (10)
  1. COLCHICINE. [Concomitant]
     Active Substance: COLCHICINE
     Indication: GOUT
     Dosage: 0.6 MG EVERY ONE HOUR AS NEEDED
     Route: 048
  2. VALSARTAN LUPIN [Suspect]
     Active Substance: VALSARTAN
     Indication: HYPERTENSION
     Dosage: DOSAGE : 160MG
     Route: 065
     Dates: start: 20150202, end: 20160215
  3. ALLOPURINOL. [Concomitant]
     Active Substance: ALLOPURINOL
     Dosage: 150 MILLIGRAM DAILY;
     Route: 048
  4. SILVER SULFADIAZINE. [Concomitant]
     Active Substance: SILVER SULFADIAZINE
     Dosage: TWICE A DAY
     Route: 061
  5. VALSARTAN ACTAVIS [Suspect]
     Active Substance: VALSARTAN
     Indication: HYPERTENSION
     Dosage: DOSAGE :160MG
     Route: 065
     Dates: start: 20160502, end: 20170612
  6. PANTOPRAZOLE [Concomitant]
     Active Substance: PANTOPRAZOLE
     Dosage: 40 MILLIGRAM DAILY;
     Route: 048
  7. DIOVAN [Suspect]
     Active Substance: VALSARTAN
     Dosage: DOSAGE: 160MG
     Route: 048
  8. ASPIRIN. [Concomitant]
     Active Substance: ASPIRIN
     Dosage: 325 MG AT BEDTIME
     Route: 048
  9. GABAPENTIN. [Concomitant]
     Active Substance: GABAPENTIN
     Dosage: 100 MG TWO CAPSULE FOUR TIMES A DAY
     Route: 048
  10. LEVEMIR [Concomitant]
     Active Substance: INSULIN DETEMIR
     Dosage: 100 UNITS/ML TWICE A DAY
     Route: 058

REACTIONS (1)
  - Renal cell carcinoma [Not Recovered/Not Resolved]
